FAERS Safety Report 14046722 (Version 1)
Quarter: 2017Q4

REPORT INFORMATION
  Report Type: Spontaneous
  Country: US (occurrence: US)
  Receive Date: 20171005
  Receipt Date: 20171005
  Transmission Date: 20180321
  Serious: No
  Sender: FDA-Public Use
  Company Number: US-RB-027457-11

PATIENT
  Sex: Female

DRUGS (3)
  1. BUPRENEX [Suspect]
     Active Substance: BUPRENORPHINE HYDROCHLORIDE
     Indication: MAJOR DEPRESSION
     Dosage: DOSING INFORMATION IS UNKNOWN
     Route: 065
     Dates: start: 1991
  2. SUBOXONE [Suspect]
     Active Substance: BUPRENORPHINE HYDROCHLORIDE\NALOXONE HYDROCHLORIDE
     Indication: DEPRESSION
     Dosage: UNK
     Route: 065
  3. SUBUTEX [Suspect]
     Active Substance: BUPRENORPHINE HYDROCHLORIDE
     Indication: DEPRESSION
     Dosage: UNK
     Route: 065

REACTIONS (4)
  - Retching [Unknown]
  - Abdominal discomfort [Unknown]
  - Therapeutic response unexpected [Unknown]
  - Off label use [Unknown]

NARRATIVE: CASE EVENT DATE: 1991
